FAERS Safety Report 25033728 (Version 1)
Quarter: 2025Q1

REPORT INFORMATION
  Report Type: Spontaneous
  Country: IT (occurrence: IT)
  Receive Date: 20250303
  Receipt Date: 20250303
  Transmission Date: 20250409
  Serious: Yes (Other)
  Sender: BEIGENE
  Company Number: IT-BEIGENE-BGN-2025-003312

PATIENT
  Age: 73 Year

DRUGS (1)
  1. BRUKINSA [Suspect]
     Active Substance: ZANUBRUTINIB
     Indication: Chronic lymphocytic leukaemia

REACTIONS (3)
  - Lumbar vertebral fracture [Unknown]
  - Spinal compression fracture [Unknown]
  - Mobility decreased [Unknown]
